FAERS Safety Report 8932993 (Version 1)
Quarter: 2012Q4

REPORT INFORMATION
  Report Type: 
  Country: DE (occurrence: DE)
  Receive Date: 20121129
  Receipt Date: 20121129
  Transmission Date: 20130627
  Serious: Yes (Other)
  Sender: FDA-Public Use
  Company Number: DE-JNJFOC-20121112243

PATIENT

DRUGS (1)
  1. INFLIXIMAB, RECOMBINANT [Suspect]
     Indication: ANKYLOSING SPONDYLITIS
     Dosage: mean dose 5 mg/kg and mean dosage interval was 6-8 weeks
     Route: 042

REACTIONS (16)
  - Psoriasis [Unknown]
  - Iridocyclitis [Unknown]
  - Infusion related reaction [Unknown]
  - Herpes zoster [Unknown]
  - Flushing [Unknown]
  - Ankylosing spondylitis [Unknown]
  - Syncope [Unknown]
  - Bradycardia [Unknown]
  - Pharyngeal oedema [Unknown]
  - Drug ineffective [Unknown]
  - Blood pressure decreased [Unknown]
  - Nausea [Unknown]
  - Fatigue [Unknown]
  - Maternal exposure before pregnancy [Unknown]
  - Pyrexia [Unknown]
  - Adverse event [Unknown]
